FAERS Safety Report 5601384-9 (Version None)
Quarter: 2008Q1

REPORT INFORMATION
  Report Type: 
  Country: None (occurrence: None)
  Receive Date: 20080124
  Receipt Date: 20080114
  Transmission Date: 20080703
  Serious: Yes (Death, Hospitalization)
  Sender: FDA-Public Use
  Company Number: DE-ROCHE-541583

PATIENT
  Age: 77 Year
  Sex: Female

DRUGS (24)
  1. CLONAZEPAM [Suspect]
     Route: 048
     Dates: start: 20030331, end: 20030409
  2. PHENPROCOUMON [Suspect]
     Indication: THROMBOSIS PROPHYLAXIS
     Route: 048
     Dates: start: 20030314, end: 20030406
  3. DIAZEPAM [Suspect]
     Route: 048
     Dates: start: 20030331, end: 20030409
  4. CARBAMAZEPINE [Suspect]
     Route: 048
     Dates: start: 20030201, end: 20030416
  5. PREDNISOLONE [Suspect]
     Route: 048
     Dates: start: 20030320
  6. BETA-ACETYLDIGOXIN [Suspect]
     Indication: SUPRAVENTRICULAR TACHYCARDIA
     Route: 048
     Dates: start: 20030314
  7. THEOPHYLLINE [Suspect]
     Route: 048
     Dates: start: 20030314
  8. DIGITOXIN INJ [Suspect]
     Indication: SUPRAVENTRICULAR TACHYCARDIA
     Route: 048
     Dates: start: 20030304
  9. PANTOPRAZOL [Suspect]
     Route: 048
     Dates: start: 20030314
  10. CLOPIDOGREL [Suspect]
     Indication: THROMBOSIS PROPHYLAXIS
     Route: 048
     Dates: start: 20030228
  11. TRIAMTERENE AND HYDROCHLOROTHIAZIDE [Suspect]
     Route: 048
     Dates: start: 20030314
  12. CLEMASTIN [Suspect]
     Route: 048
  13. METOCLOPRAMID [Suspect]
     Indication: NAUSEA
     Route: 048
  14. FEXOFENADIN [Suspect]
     Route: 048
  15. TINZAPARIN SODIUM [Suspect]
     Indication: THROMBOSIS PROPHYLAXIS
     Route: 058
  16. ALIMEMAZIN [Suspect]
     Route: 048
  17. DEXPANTHENOL [Suspect]
     Indication: CONJUNCTIVITIS
     Dosage: 3XTGL
     Route: 065
  18. FENOTEROL/IPRATROPIUM [Suspect]
     Dosage: 2X2 HUB
     Route: 055
  19. VALPROINSAURE [Suspect]
     Indication: EPILEPSY
     Route: 048
  20. CLOBAZAM [Suspect]
     Indication: EPILEPSY
     Route: 048
  21. BUDESONIDE [Concomitant]
     Route: 055
     Dates: start: 20030327
  22. SALMETEROL INHALER [Concomitant]
     Route: 055
     Dates: start: 20030327
  23. MELPERON [Concomitant]
     Indication: SLEEP DISORDER
     Route: 048
     Dates: start: 20030327
  24. VERAPAMIL [Concomitant]
     Indication: SUPRAVENTRICULAR TACHYCARDIA
     Route: 048
     Dates: start: 20030314

REACTIONS (3)
  - RASH [None]
  - STEVENS-JOHNSON SYNDROME [None]
  - TOXIC EPIDERMAL NECROLYSIS [None]
